FAERS Safety Report 7630731-1 (Version None)
Quarter: 2011Q3

REPORT INFORMATION
  Report Type: 
  Country: None (occurrence: None)
  Receive Date: 20110722
  Receipt Date: 20110721
  Transmission Date: 20111222
  Serious: Yes (Hospitalization)
  Sender: FDA-Public Use
  Company Number: GB-MERCK-0805GBR00063

PATIENT
  Age: 66 Year
  Sex: Female

DRUGS (6)
  1. RAMIPRIL [Concomitant]
     Route: 065
  2. ATENOLOL [Concomitant]
     Route: 065
  3. METFORMIN [Concomitant]
     Route: 065
  4. JANUVIA [Suspect]
     Indication: DIABETES MELLITUS
     Route: 048
  5. SIMVASTATIN [Concomitant]
     Route: 065
  6. DICLOFENAC [Concomitant]
     Route: 065

REACTIONS (1)
  - BLOOD PHOSPHORUS INCREASED [None]
